FAERS Safety Report 20491096 (Version 1)
Quarter: 2022Q1

REPORT INFORMATION
  Report Type: Spontaneous
  Country: US (occurrence: None)
  Receive Date: 20220218
  Receipt Date: 20220218
  Transmission Date: 20220423
  Serious: Yes (Hospitalization)
  Sender: FDA-Public Use
  Company Number: None

PATIENT
  Age: 89 Year
  Sex: Male
  Weight: 72 kg

DRUGS (8)
  1. ABIRATERONE ACETATE [Suspect]
     Active Substance: ABIRATERONE ACETATE
     Indication: Prostate cancer
     Dosage: FREQUENCY : DAILY;?
     Route: 048
     Dates: start: 20210310
  2. BICALUTAMIDE [Concomitant]
     Active Substance: BICALUTAMIDE
  3. TRAMADOL [Concomitant]
     Active Substance: TRAMADOL
  4. PREDNISONE [Concomitant]
     Active Substance: PREDNISONE
  5. WARFARIN [Concomitant]
     Active Substance: WARFARIN
  6. DULOXETINE [Concomitant]
     Active Substance: DULOXETINE
  7. TRAZODONE [Concomitant]
     Active Substance: TRAZODONE HYDROCHLORIDE
  8. TAMSULOSIN [Concomitant]
     Active Substance: TAMSULOSIN

REACTIONS (1)
  - Transient ischaemic attack [None]

NARRATIVE: CASE EVENT DATE: 20220218
